FAERS Safety Report 15807549 (Version 1)
Quarter: 2019Q1

REPORT INFORMATION
  Report Type: Spontaneous
  Country: BE (occurrence: BE)
  Receive Date: 20190110
  Receipt Date: 20190110
  Transmission Date: 20190417
  Serious: Yes (Other)
  Sender: FDA-Public Use
  Company Number: PHHY2019BE001861

PATIENT
  Age: 15 Year
  Sex: Female

DRUGS (6)
  1. ETHINYLESTRADIOL [Suspect]
     Active Substance: ETHINYL ESTRADIOL
     Indication: HORMONE REPLACEMENT THERAPY
     Dosage: 25 MCG QD
     Route: 065
  2. NORETHISTERONE [Suspect]
     Active Substance: NORETHINDRONE
     Indication: HORMONE REPLACEMENT THERAPY
     Route: 065
  3. BUSULFAN. [Suspect]
     Active Substance: BUSULFAN
     Indication: SICKLE CELL ANAEMIA
     Dosage: 16 MG/KG
     Route: 065
  4. ESTRADIOL. [Suspect]
     Active Substance: ESTRADIOL
     Indication: HORMONE REPLACEMENT THERAPY
     Route: 065
  5. CYCLOPHOSPHAMIDE. [Suspect]
     Active Substance: CYCLOPHOSPHAMIDE
     Indication: SICKLE CELL ANAEMIA
     Dosage: 200 MG/KG
     Route: 065
  6. DYDROGESTERONE [Suspect]
     Active Substance: DYDROGESTERONE
     Indication: HORMONE REPLACEMENT THERAPY
     Dosage: 10 DAYS/MONTH
     Route: 065

REACTIONS (2)
  - Ovarian atrophy [Recovered/Resolved]
  - Ovarian failure [Recovered/Resolved]

NARRATIVE: CASE EVENT DATE: 1992
